FAERS Safety Report 6249236-8 (Version None)
Quarter: 2009Q2

REPORT INFORMATION
  Report Type: 
  Country: None (occurrence: None)
  Receive Date: 20090629
  Receipt Date: 20090625
  Transmission Date: 20091009
  Serious: Yes (Hospitalization)
  Sender: FDA-Public Use
  Company Number: GB-BAYER-200810205BNE

PATIENT
  Age: 67 Year
  Sex: Male
  Weight: 93 kg

DRUGS (10)
  1. SORAFENIB [Suspect]
     Indication: THYROID CANCER METASTATIC
     Dosage: TOTAL DAILY DOSE: 800 MG
     Dates: start: 20080117, end: 20080128
  2. PROZAC [Concomitant]
  3. LEVOTHYROXINE SODIUM [Concomitant]
  4. TRAMADOL HCL [Concomitant]
  5. ARTHRITEC [Concomitant]
  6. ZOLTON [Concomitant]
  7. FLOUXETINE [Concomitant]
  8. ZIMOVAZE [Concomitant]
  9. OROMORPH [Concomitant]
     Dosage: TOTAL DAILY DOSE: 40 MG
  10. AMITRYPTIUNE [Concomitant]

REACTIONS (10)
  - C-REACTIVE PROTEIN INCREASED [None]
  - CANDIDIASIS [None]
  - CULTURE URINE POSITIVE [None]
  - INFECTION [None]
  - LABORATORY TEST INTERFERENCE [None]
  - PSEUDOMONAS INFECTION [None]
  - PYREXIA [None]
  - RASH [None]
  - TACHYCARDIA [None]
  - VIRAL INFECTION [None]
